FAERS Safety Report 4953676-4 (Version None)
Quarter: 2006Q1

REPORT INFORMATION
  Report Type: 
  Country: None (occurrence: None)
  Receive Date: 20060324
  Receipt Date: 20051123
  Transmission Date: 20060701
  Serious: Yes (Hospitalization)
  Sender: FDA-Public Use
  Company Number: US-MERCK-0511USA04003

PATIENT
  Sex: Male

DRUGS (5)
  1. VIOXX [Suspect]
     Indication: OSTEOARTHRITIS
     Route: 048
     Dates: start: 20000101, end: 20020110
  2. VIOXX [Suspect]
     Route: 048
     Dates: start: 20000101, end: 20020110
  3. AMARYL [Concomitant]
     Route: 065
  4. DIOVAN [Concomitant]
     Route: 065
  5. CLARITIN [Concomitant]
     Route: 065

REACTIONS (7)
  - ARTERIOSCLEROSIS CORONARY ARTERY [None]
  - BLOOD PRESSURE INCREASED [None]
  - FATIGUE [None]
  - HYPOACUSIS [None]
  - MYOCARDIAL INFARCTION [None]
  - NEPHROLITHIASIS [None]
  - RENAL DISORDER [None]
